FAERS Safety Report 18187314 (Version 2)
Quarter: 2020Q3

REPORT INFORMATION
  Report Type: Spontaneous
  Country: FR (occurrence: FR)
  Receive Date: 20200824
  Receipt Date: 20200923
  Transmission Date: 20201103
  Serious: Yes (Hospitalization)
  Sender: FDA-Public Use
  Company Number: FR-SA-2020SA175090

PATIENT

DRUGS (14)
  1. FLUCONAZOLE. [Suspect]
     Active Substance: FLUCONAZOLE
     Indication: ORAL FUNGAL INFECTION
     Dosage: 200 MG, QD
     Route: 048
     Dates: start: 20200604, end: 20200609
  2. RANITIDINE. [Suspect]
     Active Substance: RANITIDINE
     Indication: CHEMOTHERAPY SIDE EFFECT PROPHYLAXIS
     Dosage: 3 DF
     Route: 048
     Dates: start: 20200330
  3. RANITIDINE. [Suspect]
     Active Substance: RANITIDINE
     Indication: PRODUCT USED FOR UNKNOWN INDICATION
     Dosage: 2 DF, QD
     Route: 048
     Dates: start: 20200604, end: 20200606
  4. PRIMPERAN [Suspect]
     Active Substance: METOCLOPRAMIDE HYDROCHLORIDE
     Indication: PRODUCT USED FOR UNKNOWN INDICATION
     Dosage: 3 DF, QD
     Route: 048
     Dates: start: 20200330
  5. CARBOPLATIN. [Suspect]
     Active Substance: CARBOPLATIN
     Indication: LUNG ADENOCARCINOMA
     Dosage: 580 MG, QCY
     Route: 042
     Dates: start: 20200603, end: 20200603
  6. PACLITAXEL. [Suspect]
     Active Substance: PACLITAXEL
     Indication: LUNG ADENOCARCINOMA
     Dosage: 266.5 MG, QCY
     Route: 042
     Dates: start: 20200603, end: 20200603
  7. POLARAMINE [Suspect]
     Active Substance: DEXCHLORPHENIRAMINE MALEATE
     Indication: CHEMOTHERAPY SIDE EFFECT PROPHYLAXIS
     Dosage: 5 MG, ONCE
     Route: 042
     Dates: start: 20200603, end: 20200603
  8. APREPITANT. [Suspect]
     Active Substance: APREPITANT
     Indication: PRODUCT USED FOR UNKNOWN INDICATION
     Dosage: 1 DF, QD
     Route: 048
     Dates: start: 20200605, end: 20200606
  9. ONDANSETRON [Suspect]
     Active Substance: ONDANSETRON
     Indication: PRODUCT USED FOR UNKNOWN INDICATION
     Dosage: 2 DF, QD
     Route: 048
     Dates: start: 20200604, end: 20200606
  10. RANITIDINE. [Suspect]
     Active Substance: RANITIDINE
     Indication: ORAL FUNGAL INFECTION
     Dosage: 200 MG, QD
     Route: 048
     Dates: start: 20200604, end: 20200609
  11. RANITIDINE. [Suspect]
     Active Substance: RANITIDINE
     Dosage: 1 DF, QD
     Route: 048
     Dates: start: 20200605, end: 20200606
  12. DEXCHLORPHENIRAMINE MALEATE. [Suspect]
     Active Substance: DEXCHLORPHENIRAMINE MALEATE
     Indication: CHEMOTHERAPY SIDE EFFECT PROPHYLAXIS
     Dosage: 5 MG, ONCE
     Route: 042
     Dates: start: 20200603, end: 20200603
  13. RANITIDINE. [Suspect]
     Active Substance: RANITIDINE
     Indication: LUNG ADENOCARCINOMA
     Dosage: 580 MG, QD
     Route: 042
     Dates: start: 20200603, end: 20200603
  14. RANITIDINE. [Suspect]
     Active Substance: RANITIDINE
     Dosage: 200 MG, TOTAL (ONCE)
     Route: 042

REACTIONS (3)
  - Rash maculo-papular [Recovered/Resolved]
  - Pruritus [Recovered/Resolved]
  - Pyrexia [Recovered/Resolved]

NARRATIVE: CASE EVENT DATE: 20200606
